FAERS Safety Report 6068959-7 (Version None)
Quarter: 2009Q1

REPORT INFORMATION
  Report Type: 
  Country: None (occurrence: None)
  Receive Date: 20090206
  Receipt Date: 20090128
  Transmission Date: 20090719
  Serious: Yes (Hospitalization)
  Sender: FDA-Public Use
  Company Number: PHHO2007MX13380

PATIENT
  Age: 42 Year
  Sex: Female

DRUGS (2)
  1. ZELNORM [Suspect]
     Indication: IRRITABLE BOWEL SYNDROME
     Dosage: 6 MG, BID
     Route: 048
     Dates: start: 20070301, end: 20070719
  2. ZELNORM [Suspect]
     Dosage: 6 MG, QD
     Route: 048
     Dates: start: 20070719, end: 20070820

REACTIONS (4)
  - DIVERTICULUM [None]
  - GALLBLADDER DISORDER [None]
  - GALLBLADDER OPERATION [None]
  - SALMONELLOSIS [None]
